FAERS Safety Report 8018558-2 (Version None)
Quarter: 2012Q1

REPORT INFORMATION
  Report Type: 
  Country: None (occurrence: None)
  Receive Date: 20120103
  Receipt Date: 20111228
  Transmission Date: 20120608
  Serious: Yes (Other)
  Sender: FDA-Public Use
  Company Number: US-PFIZER INC-2011295025

PATIENT
  Sex: Female
  Weight: 110.2 kg

DRUGS (3)
  1. CHANTIX [Suspect]
     Indication: SMOKING CESSATION THERAPY
     Dosage: 0.5 MG, 1X/DAY
     Route: 048
     Dates: start: 20111103, end: 20111101
  2. CHANTIX [Suspect]
     Dosage: 1 MG, 2X/DAY
     Route: 048
     Dates: start: 20111101, end: 20111101
  3. NICORETTE [Suspect]
     Indication: SMOKING CESSATION THERAPY
     Dosage: UNK
     Route: 062

REACTIONS (8)
  - ABNORMAL BEHAVIOUR [None]
  - TOBACCO USER [None]
  - PULMONARY OEDEMA [None]
  - STRESS [None]
  - FRUSTRATION [None]
  - DRUG INEFFECTIVE [None]
  - ANGER [None]
  - MENTAL STATUS CHANGES [None]
